FAERS Safety Report 10152569 (Version 1)
Quarter: 2014Q2

REPORT INFORMATION
  Report Type: Spontaneous
  Country: FR (occurrence: FR)
  Receive Date: 20140505
  Receipt Date: 20140505
  Transmission Date: 20141212
  Serious: Yes (Hospitalization)
  Sender: FDA-Public Use
  Company Number: FR-NOVOPROD-408610

PATIENT
  Age: 89 Year
  Sex: Male

DRUGS (13)
  1. NOVOMIX [Suspect]
     Indication: TYPE 1 DIABETES MELLITUS
     Dosage: UNK
     Route: 058
  2. NOVORAPID [Suspect]
     Indication: TYPE 1 DIABETES MELLITUS
     Dosage: UNK
     Route: 058
  3. NICORANDIL ZENTIVA [Suspect]
     Indication: CORONARY ARTERY INSUFFICIENCY
     Dosage: UNK
     Route: 048
     Dates: end: 20130523
  4. KARDEGIC [Suspect]
     Indication: PRODUCT USED FOR UNKNOWN INDICATION
     Dosage: UNK
     Route: 048
  5. AUGMENTIN [Suspect]
     Indication: DERMO-HYPODERMITIS
     Dosage: UNK
     Route: 048
     Dates: start: 20130513
  6. ACEBUTOLOL [Suspect]
     Indication: PRODUCT USED FOR UNKNOWN INDICATION
     Dosage: UNK
     Route: 048
  7. PREVISCAN                          /00261401/ [Suspect]
     Indication: PRODUCT USED FOR UNKNOWN INDICATION
     Dosage: UNK
     Route: 048
     Dates: end: 20130525
  8. PREVISCAN                          /00261401/ [Suspect]
     Dosage: UNK
     Dates: start: 20130527
  9. PRAVASTATINE [Suspect]
     Indication: PRODUCT USED FOR UNKNOWN INDICATION
     Dosage: UNK
     Route: 048
  10. SERESTA [Suspect]
     Indication: PRODUCT USED FOR UNKNOWN INDICATION
     Route: 048
  11. DAFALGAN CODEINE [Suspect]
     Indication: PRODUCT USED FOR UNKNOWN INDICATION
     Route: 048
  12. DIAFUSOR [Suspect]
     Indication: PRODUCT USED FOR UNKNOWN INDICATION
     Dosage: UNK
     Route: 048
  13. PERINDOPRIL INDAPAMIDE [Suspect]
     Indication: PRODUCT USED FOR UNKNOWN INDICATION
     Dosage: UNK
     Route: 048

REACTIONS (17)
  - Oesophagitis ulcerative [Recovering/Resolving]
  - Hiatus hernia [None]
  - Malaise [None]
  - Headache [None]
  - Vertigo [None]
  - Vision blurred [None]
  - Hyperhidrosis [None]
  - Abdominal pain [None]
  - Hypotension [None]
  - Cachexia [None]
  - Dysphagia [None]
  - Vomiting [None]
  - Haemoglobin decreased [None]
  - International normalised ratio increased [None]
  - Prothrombin time prolonged [None]
  - Haematemesis [None]
  - Diverticulitis [None]
